FAERS Safety Report 8814822 (Version 1)
Quarter: 2012Q4

REPORT INFORMATION
  Report Type: 
  Country: US (occurrence: US)
  Receive Date: 20120928
  Receipt Date: 20120928
  Transmission Date: 20130627
  Serious: Yes (Other)
  Sender: FDA-Public Use
  Company Number: US-PFIZER INC-2012236493

PATIENT
  Sex: Female

DRUGS (1)
  1. LEVOXYL [Suspect]
     Dosage: 75 ug, UNK
     Dates: start: 20120922

REACTIONS (7)
  - Blood pressure increased [Unknown]
  - Chest discomfort [Unknown]
  - Palpitations [Unknown]
  - Heart rate increased [Unknown]
  - Nasopharyngitis [Unknown]
  - Nervousness [Unknown]
  - Feeling abnormal [Unknown]
